FAERS Safety Report 13639109 (Version 1)
Quarter: 2017Q2

REPORT INFORMATION
  Report Type: Spontaneous
  Country: US (occurrence: US)
  Receive Date: 20170609
  Receipt Date: 20170609
  Transmission Date: 20170830
  Serious: No
  Sender: FDA-Public Use
  Company Number: US-ROCHE-1448898

PATIENT
  Sex: Female

DRUGS (2)
  1. KLONOPIN [Suspect]
     Active Substance: CLONAZEPAM
     Indication: PARTIAL SEIZURES
     Dosage: 1MG TWICE A DAY, 2MG AT BEDTIME, 4MG/DAY
     Route: 048
  2. CLONAZEPAM. [Suspect]
     Active Substance: CLONAZEPAM
     Indication: PARTIAL SEIZURES
     Dosage: 1MG TWICE A DAY, 2MG AT BEDTIME
     Route: 048

REACTIONS (3)
  - Dyskinesia [Unknown]
  - Dizziness [Unknown]
  - Drug ineffective [Unknown]
